FAERS Safety Report 7816421-0 (Version None)
Quarter: 2011Q4

REPORT INFORMATION
  Report Type: 
  Country: None (occurrence: None)
  Receive Date: 20111017
  Receipt Date: 20111005
  Transmission Date: 20120403
  Serious: Yes (Life-Threatening, Hospitalization)
  Sender: FDA-Public Use
  Company Number: JP-SP-2011-08647

PATIENT
  Sex: Male

DRUGS (2)
  1. SITAGLIPTIN PHOSPHATE [Concomitant]
  2. IMMUCYST [Suspect]
     Indication: BLADDER CANCER
     Route: 043
     Dates: start: 20110801, end: 20110815

REACTIONS (5)
  - BOVINE TUBERCULOSIS [None]
  - PYREXIA [None]
  - MALAISE [None]
  - HEPATIC FUNCTION ABNORMAL [None]
  - CHEST X-RAY ABNORMAL [None]
